FAERS Safety Report 9832888 (Version 3)
Quarter: 2014Q1

REPORT INFORMATION
  Report Type: Spontaneous
  Country: IT (occurrence: IT)
  Receive Date: 20140121
  Receipt Date: 20140129
  Transmission Date: 20141002
  Serious: Yes (Other)
  Sender: FDA-Public Use
  Company Number: IT-PFIZER INC-2014013635

PATIENT
  Age: 60 Year
  Sex: Male

DRUGS (5)
  1. ALPRAZOLAM [Suspect]
     Indication: ANXIETY
     Dosage: 20 GTT, TOTAL
     Route: 048
     Dates: start: 20131003, end: 20131208
  2. RIVOTRIL [Suspect]
     Indication: ANXIETY
     Dosage: 20 GTT, 1X/DAY
     Route: 048
     Dates: start: 20131003, end: 20131208
  3. ZOLOFT [Concomitant]
     Dosage: 50 MG, UNK
     Route: 048
  4. EFEXOR [Concomitant]
     Dosage: 75 MG, UNK
     Route: 048
     Dates: start: 20131206, end: 20131208
  5. SAMYR [Concomitant]
     Dosage: 400 MG, UNK
     Route: 048
     Dates: start: 20131207, end: 20131207

REACTIONS (6)
  - Drug ineffective [Recovering/Resolving]
  - Injury [Recovering/Resolving]
  - Asthenia [Recovering/Resolving]
  - Confusional state [Recovering/Resolving]
  - Headache [Recovering/Resolving]
  - Drug abuse [Unknown]
